FAERS Safety Report 5447624-0 (Version None)
Quarter: 2007Q3

REPORT INFORMATION
  Report Type: 
  Country: None (occurrence: None)
  Receive Date: 20070905
  Receipt Date: 20070828
  Transmission Date: 20080115
  Serious: Yes (Hospitalization)
  Sender: FDA-Public Use
  Company Number: DSU-2007-00463

PATIENT
  Age: 29 Year
  Sex: Male

DRUGS (5)
  1. OLMESARTAN MEDOXOMIL AND HYDROCHLOROTHIZIDE [Suspect]
     Indication: HYPERTENSION
     Dosage: SEE IMAGE
     Route: 048
     Dates: start: 20070724, end: 20070801
  2. OLMESARTAN MEDOXOMIL AND HYDROCHLOROTHIZIDE [Suspect]
     Indication: HYPERTENSION
     Dosage: SEE IMAGE
     Route: 048
     Dates: start: 20070802
  3. ENGERIX B (HEPATITIS B VACCINE) (20 MICROGRAM) (HEPATITIS B VACCINE) [Concomitant]
  4. CLARITHROMYCIN [Concomitant]
  5. MICARDIS HCT (HYDROCHLOROTHIAZIDE, TELMISARTAN) (HYDROCHLOROTHIAZIE, T [Concomitant]

REACTIONS (2)
  - HYPOKALAEMIA [None]
  - PALPITATIONS [None]
